FAERS Safety Report 9183068 (Version 1)
Quarter: 2013Q1

REPORT INFORMATION
  Report Type: Spontaneous
  Country: US (occurrence: US)
  Receive Date: 20130322
  Receipt Date: 20130322
  Transmission Date: 20140127
  Serious: No
  Sender: FDA-Public Use
  Company Number: US-BRISTOL-MYERS SQUIBB COMPANY-16872038

PATIENT
  Age: 75 Year
  Sex: Female
  Weight: 55.33 kg

DRUGS (2)
  1. ERBITUX [Suspect]
     Indication: TONGUE NEOPLASM MALIGNANT STAGE UNSPECIFIED
  2. ERBITUX [Suspect]
     Indication: THROAT CANCER

REACTIONS (2)
  - Localised infection [Recovering/Resolving]
  - Dry skin [Unknown]
